FAERS Safety Report 17523582 (Version 1)
Quarter: 2020Q1

REPORT INFORMATION
  Report Type: Spontaneous
  Country: DK (occurrence: DK)
  Receive Date: 20200311
  Receipt Date: 20200311
  Transmission Date: 20200409
  Serious: Yes (Other)
  Sender: FDA-Public Use
  Company Number: DK-AMGEN-DNKSP2020032010

PATIENT
  Age: 33 Year
  Sex: Female

DRUGS (3)
  1. AIROMIR [SALBUTAMOL SULFATE] [Concomitant]
     Active Substance: ALBUTEROL SULFATE
     Indication: ASTHMA
     Dosage: UNK (STYRKE: 0,1 MG/DOSIS. DOSIS: VED BEHOV  )
     Route: 055
     Dates: start: 20131024
  2. AIMOVIG [Suspect]
     Active Substance: ERENUMAB-AOOE
     Indication: MIGRAINE
     Dosage: 140 MG, Q4W (STYRKE: 70 MG)
     Route: 058
     Dates: start: 20190918
  3. INNOVAIR [Concomitant]
     Active Substance: BECLOMETHASONE DIPROPIONATE\FORMOTEROL
     Indication: ASTHMA
     Dosage: 2 DF, QD (STYRKE: 200+6 MUG/DOSIS)
     Route: 055
     Dates: start: 20180509

REACTIONS (10)
  - Poor quality sleep [Not Recovered/Not Resolved]
  - Alopecia [Not Recovered/Not Resolved]
  - Asthma [Not Recovered/Not Resolved]
  - Cognitive disorder [Not Recovered/Not Resolved]
  - Anaphylactic reaction [Recovered/Resolved]
  - Nasal congestion [Unknown]
  - Hypersensitivity [Recovered/Resolved]
  - Pruritus [Unknown]
  - Nasal congestion [Not Recovered/Not Resolved]
  - Constipation [Not Recovered/Not Resolved]

NARRATIVE: CASE EVENT DATE: 20190921
